FAERS Safety Report 16196632 (Version 1)
Quarter: 2019Q2

REPORT INFORMATION
  Report Type: Spontaneous
  Country: US (occurrence: US)
  Receive Date: 20190415
  Receipt Date: 20190415
  Transmission Date: 20190711
  Serious: No
  Sender: FDA-Public Use
  Company Number: US-TEVA-2019-US-997311

PATIENT
  Age: 59 Year
  Sex: Female

DRUGS (4)
  1. NALTREXONE [Suspect]
     Active Substance: NALTREXONE
     Dosage: 5 MILLIGRAM DAILY;
  2. PREDNISONE. [Suspect]
     Active Substance: PREDNISONE
     Indication: DERMATOMYOSITIS
     Dosage: 2 MG/KG DAILY;
     Route: 048
  3. METHOTREXATE. [Suspect]
     Active Substance: METHOTREXATE
     Indication: DERMATOMYOSITIS
     Route: 048
  4. IMMUNE GLOBULIN IV [Suspect]
     Active Substance: HUMAN IMMUNOGLOBULIN G
     Indication: DERMATOMYOSITIS
     Dosage: MONTHLY
     Route: 041

REACTIONS (3)
  - Erythema [Unknown]
  - Pruritus [Recovered/Resolved]
  - Off label use [Unknown]
